FAERS Safety Report 8814735 (Version 2)
Quarter: 2012Q4

REPORT INFORMATION
  Report Type: 
  Country: US (occurrence: US)
  Receive Date: 20120928
  Receipt Date: 20121003
  Transmission Date: 20130627
  Serious: Yes (Other)
  Sender: FDA-Public Use
  Company Number: US-PFIZER INC-2012240298

PATIENT
  Age: 63 Year
  Sex: Female
  Weight: 65.76 kg

DRUGS (6)
  1. PROTONIX [Suspect]
     Indication: ULCER
     Dosage: 40 mg, daily
     Dates: start: 2004
  2. PROTONIX [Suspect]
     Dosage: UNK
     Dates: start: 201209
  3. NEXIUM [Suspect]
     Indication: ULCER
     Dosage: UNK
  4. GLIPIZIDE [Concomitant]
     Indication: DIABETES MELLITUS
     Dosage: 2 mg, 2x/day
  5. LANTUS [Concomitant]
     Indication: DIABETES MELLITUS
     Dosage: 25 IU, daily at night
  6. LEVOTHYROXINE [Concomitant]
     Indication: THYROID DISORDER
     Dosage: 0.25 ug, daily

REACTIONS (1)
  - Drug dependence [Unknown]
